FAERS Safety Report 13945154 (Version 1)
Quarter: 2017Q3

REPORT INFORMATION
  Report Type: Spontaneous
  Country: SE (occurrence: SE)
  Receive Date: 20170907
  Receipt Date: 20170907
  Transmission Date: 20171128
  Serious: Yes (Other)
  Sender: FDA-Public Use
  Company Number: SE-AMGEN-SWESP2017133370

PATIENT
  Age: 74 Year
  Sex: Female

DRUGS (11)
  1. FELODIPINE. [Concomitant]
     Active Substance: FELODIPINE
  2. PREDNISOLONE. [Concomitant]
     Active Substance: PREDNISOLONE
  3. PANODIL [Concomitant]
     Active Substance: ACETAMINOPHEN
  4. TROMBYL [Concomitant]
     Active Substance: ASPIRIN
  5. PROLIA [Suspect]
     Active Substance: DENOSUMAB
     Indication: PRODUCT USED FOR UNKNOWN INDICATION
     Dosage: 60 MG,
     Route: 058
     Dates: start: 20170329, end: 20170329
  6. ETALPHA [Concomitant]
     Active Substance: ALFACALCIDOL
  7. SIMVASTATIN. [Concomitant]
     Active Substance: SIMVASTATIN
  8. FUROSEMIDE. [Concomitant]
     Active Substance: FUROSEMIDE
  9. ALLOPURINOL. [Concomitant]
     Active Substance: ALLOPURINOL
  10. OMEPRAZOLE. [Concomitant]
     Active Substance: OMEPRAZOLE
  11. TENORMIN [Concomitant]
     Active Substance: ATENOLOL

REACTIONS (1)
  - Alopecia [Recovered/Resolved]

NARRATIVE: CASE EVENT DATE: 20170331
